FAERS Safety Report 8534458-3 (Version None)
Quarter: 2012Q3

REPORT INFORMATION
  Report Type: 
  Country: None (occurrence: None)
  Receive Date: 20120724
  Receipt Date: 20120722
  Transmission Date: 20120928
  Serious: Yes (Other)
  Sender: FDA-Public Use
  Company Number: US-BAYER-2012-073749

PATIENT
  Age: 19 Year
  Sex: Female

DRUGS (1)
  1. BETASERON [Suspect]
     Indication: MULTIPLE SCLEROSIS
     Dosage: 2 MIU, QOD
     Route: 058
     Dates: start: 20120719

REACTIONS (4)
  - NERVOUSNESS [None]
  - PARANOIA [None]
  - DISSOCIATION [None]
  - DEPRESSION [None]
